FAERS Safety Report 5987067-4 (Version None)
Quarter: 2008Q4

REPORT INFORMATION
  Report Type: 
  Country: None (occurrence: None)
  Receive Date: 20081209
  Receipt Date: 20080314
  Transmission Date: 20090506
  Serious: No
  Sender: FDA-Public Use
  Company Number: A0707227A

PATIENT
  Age: 64 Year
  Sex: Male
  Weight: 108.2 kg

DRUGS (7)
  1. AVANDAMET [Suspect]
     Dosage: 2TAB TWICE PER DAY
     Route: 048
     Dates: start: 20061001, end: 20080201
  2. DIGOXIN [Concomitant]
  3. LASIX [Concomitant]
     Dosage: 40MG PER DAY
  4. ATENOLOL [Concomitant]
     Dosage: 50MG PER DAY
  5. SIMVASTATIN [Concomitant]
     Dosage: 20MG PER DAY
  6. SPIRONOLACTONE [Concomitant]
     Dosage: 50MG PER DAY
  7. COMBIVENT [Concomitant]
     Dosage: 2PUFF TWICE PER DAY

REACTIONS (2)
  - BLOOD CHOLESTEROL INCREASED [None]
  - BLOOD TRIGLYCERIDES INCREASED [None]
